FAERS Safety Report 20926830 (Version 1)
Quarter: 2022Q2

REPORT INFORMATION
  Report Type: Spontaneous
  Country: CH (occurrence: CH)
  Receive Date: 20220607
  Receipt Date: 20220607
  Transmission Date: 20220721
  Serious: Yes (Other)
  Sender: FDA-Public Use
  Company Number: CH-TAKEDA-2022TEU004265

PATIENT
  Age: 31 Year
  Sex: Male

DRUGS (4)
  1. MESALAMINE [Suspect]
     Active Substance: MESALAMINE
     Indication: Colitis ulcerative
     Dosage: 3 GRAM
     Route: 065
  2. MESALAMINE [Suspect]
     Active Substance: MESALAMINE
     Indication: Colitis
  3. INFLIXIMAB [Concomitant]
     Active Substance: INFLIXIMAB
     Dosage: UNK
  4. PREDNISONE [Concomitant]
     Active Substance: PREDNISONE
     Dosage: 60 MILLIGRAM

REACTIONS (1)
  - Pyoderma gangrenosum [Unknown]
